FAERS Safety Report 24242550 (Version 2)
Quarter: 2024Q3

REPORT INFORMATION
  Report Type: Report from Study
  Country: CA (occurrence: CA)
  Receive Date: 20240823
  Receipt Date: 20240830
  Transmission Date: 20241017
  Serious: Yes (Other)
  Sender: JOHNSON AND JOHNSON
  Company Number: CA-JNJFOC-20240634307

PATIENT
  Age: 62 Year
  Sex: Male

DRUGS (6)
  1. STELARA [Suspect]
     Active Substance: USTEKINUMAB
     Indication: Colitis ulcerative
     Route: 058
     Dates: start: 20231108
  2. STELARA [Suspect]
     Active Substance: USTEKINUMAB
     Route: 058
     Dates: start: 20240420
  3. STELARA [Suspect]
     Active Substance: USTEKINUMAB
     Route: 058
     Dates: start: 20231108
  4. STELARA [Suspect]
     Active Substance: USTEKINUMAB
     Route: 058
     Dates: start: 20231114
  5. STELARA [Suspect]
     Active Substance: USTEKINUMAB
     Dosage: ON 24-AUG-2024, THE PATIENT RECEIVED 7TH INJECTION OF USTEKINUMAB AT A DOSE OF 90 MG
     Route: 058
     Dates: start: 20231108
  6. PANTOPRAZOLE [Suspect]
     Active Substance: PANTOPRAZOLE
     Indication: Product used for unknown indication
     Route: 065

REACTIONS (11)
  - Lung carcinoma cell type unspecified stage IV [Unknown]
  - Colitis ulcerative [Unknown]
  - Haematochezia [Unknown]
  - Syncope [Unknown]
  - Pyrexia [Unknown]
  - Swollen tongue [Unknown]
  - Mouth swelling [Unknown]
  - Blood iron decreased [Unknown]
  - Asthenia [Not Recovered/Not Resolved]
  - Diarrhoea [Not Recovered/Not Resolved]
  - Hypersensitivity [Unknown]

NARRATIVE: CASE EVENT DATE: 20240628
